FAERS Safety Report 5092038-9 (Version None)
Quarter: 2006Q3

REPORT INFORMATION
  Report Type: 
  Country: None (occurrence: None)
  Receive Date: 20060825
  Receipt Date: 20060802
  Transmission Date: 20061208
  Serious: Yes (Life-Threatening, Other)
  Sender: FDA-Public Use
  Company Number: 2006RR-03179

PATIENT
  Age: 13 Year

DRUGS (1)
  1. FLUOXETINE [Suspect]
     Dosage: 20 MG,

REACTIONS (1)
  - SUICIDAL IDEATION [None]
